FAERS Safety Report 8935803 (Version 2)
Quarter: 2012Q4

REPORT INFORMATION
  Report Type: 
  Country: US (occurrence: US)
  Receive Date: 20121130
  Receipt Date: 20121228
  Transmission Date: 20130627
  Serious: Yes (Hospitalization)
  Sender: FDA-Public Use
  Company Number: US-TEVA-373309USA

PATIENT
  Sex: Male
  Weight: 90.72 kg

DRUGS (7)
  1. TREANDA [Suspect]
     Indication: NON-HODGKIN^S LYMPHOMA
     Route: 042
     Dates: start: 20120710
  2. RITUXIMAB [Suspect]
     Dates: start: 20120710
  3. VANCOMYCIN [Concomitant]
  4. ZOSYN [Concomitant]
  5. ATENOLOL [Concomitant]
     Dosage: 25 Milligram Daily;
  6. NORVASC [Concomitant]
     Dosage: 10 Milligram Daily;
  7. ALLOPURINOL [Concomitant]
     Dosage: 300 Milligram Daily;

REACTIONS (1)
  - Rash [Recovered/Resolved]
